FAERS Safety Report 7478160-8 (Version None)
Quarter: 2011Q2

REPORT INFORMATION
  Report Type: 
  Country: None (occurrence: None)
  Receive Date: 20110513
  Receipt Date: 20110429
  Transmission Date: 20111010
  Serious: Yes (Hospitalization)
  Sender: FDA-Public Use
  Company Number: US-JNJFOC-20110500395

PATIENT
  Sex: Female
  Weight: 95.26 kg

DRUGS (3)
  1. ENALAPRIL [Concomitant]
     Indication: HYPERTENSION
     Route: 048
  2. METFORMIN HCL [Concomitant]
     Indication: DIABETES MELLITUS
     Route: 048
  3. REMICADE [Suspect]
     Indication: RHEUMATOID ARTHRITIS
     Route: 042

REACTIONS (8)
  - HYPOKINESIA [None]
  - PAIN [None]
  - HYPOAESTHESIA [None]
  - THROMBOSIS [None]
  - JOINT STIFFNESS [None]
  - MALAISE [None]
  - ASTHENIA [None]
  - JOINT SWELLING [None]
